FAERS Safety Report 7734688-4 (Version None)
Quarter: 2011Q3

REPORT INFORMATION
  Report Type: 
  Country: None (occurrence: None)
  Receive Date: 20110907
  Receipt Date: 20110826
  Transmission Date: 20111222
  Serious: Yes (Life-Threatening)
  Sender: FDA-Public Use
  Company Number: DE-ELI_LILLY_AND_COMPANY-DE201108008722

PATIENT
  Age: 65 Year
  Sex: Female

DRUGS (13)
  1. DULOXETINE HYDROCHLORIDE [Suspect]
     Indication: DEPRESSION
     Dosage: 2 DF, EACH MORNING
  2. SEROQUEL [Concomitant]
     Dosage: 100 DF, BID
  3. PANTOPRAZOLE [Concomitant]
  4. TORSEMIDE [Concomitant]
  5. DULOXETINE HYDROCHLORIDE [Suspect]
     Dosage: 1 DF, QD
  6. LEVOTHYROXINE SODIUM [Concomitant]
  7. ASPIRIN [Concomitant]
     Dosage: 100 DF, UNKNOWN
  8. DIOVAN [Concomitant]
  9. PLAVIX [Concomitant]
  10. LYRICA [Concomitant]
     Dosage: 75 DF, BID
  11. BISOPROLOL FUMARATE [Concomitant]
  12. LORAZEPAM [Concomitant]
     Dosage: 0.5 DF, BID
  13. PRAVASTATIN [Concomitant]

REACTIONS (2)
  - BLOOD CREATINE PHOSPHOKINASE MB [None]
  - TROPONIN I INCREASED [None]
